FAERS Safety Report 5983016-3 (Version None)
Quarter: 2008Q4

REPORT INFORMATION
  Report Type: 
  Country: None (occurrence: None)
  Receive Date: 20081208
  Receipt Date: 20080716
  Transmission Date: 20090506
  Serious: No
  Sender: FDA-Public Use
  Company Number: US-AMGEN-KDL295411

PATIENT
  Sex: Female

DRUGS (2)
  1. ENBREL [Suspect]
     Indication: ANKYLOSING SPONDYLITIS
     Route: 058
     Dates: start: 20021127
  2. PLAQUENIL [Concomitant]
     Route: 048

REACTIONS (3)
  - HEADACHE [None]
  - PAIN IN EXTREMITY [None]
  - SPINAL CORD DISORDER [None]
